FAERS Safety Report 25858454 (Version 1)
Quarter: 2025Q3

REPORT INFORMATION
  Report Type: Spontaneous
  Country: EU (occurrence: EU)
  Receive Date: 20250929
  Receipt Date: 20250929
  Transmission Date: 20251020
  Serious: Yes (Other)
  Sender: ACCORD
  Company Number: EU-MLMSERVICE-20250911-PI641269-00306-1

PATIENT
  Age: 37 Year
  Sex: Female

DRUGS (1)
  1. TACROLIMUS [Suspect]
     Active Substance: TACROLIMUS
     Indication: Liver transplant rejection

REACTIONS (1)
  - Pseudoxanthoma elasticum [Unknown]
